FAERS Safety Report 9970838 (Version 1)
Quarter: 2014Q1

REPORT INFORMATION
  Report Type: Report from Study
  Country: US (occurrence: US)
  Receive Date: 20140306
  Receipt Date: 20140306
  Transmission Date: 20141002
  Serious: No
  Sender: FDA-Public Use
  Company Number: US-ABBVIE-13P-163-1149134-00

PATIENT
  Age: 56 Year
  Sex: Female
  Weight: 68.1 kg

DRUGS (14)
  1. HUMIRA [Suspect]
     Indication: COLITIS ULCERATIVE
     Dates: start: 201307
  2. ALLOPURINOL [Concomitant]
     Indication: RENAL LITHIASIS PROPHYLAXIS
  3. HYDROCHLOROTHIAZIDE [Concomitant]
     Indication: FLUID RETENTION
  4. VALTREX [Concomitant]
     Indication: ORAL HERPES
  5. SYNTHROID [Concomitant]
     Indication: HYPOTHYROIDISM
  6. VITAMIN D [Concomitant]
     Indication: VITAMIN D DEFICIENCY
  7. CRESTOR [Concomitant]
     Indication: HYPERCHOLESTEROLAEMIA
  8. TRILIPIX [Concomitant]
     Indication: HYPERCHOLESTEROLAEMIA
  9. SINGULAIR [Concomitant]
     Indication: ASTHMA
  10. MULTIVITAMIN [Concomitant]
     Indication: VITAMIN SUPPLEMENTATION
  11. KLOR-CON [Concomitant]
     Indication: HYPOKALAEMIA
  12. APRISO [Concomitant]
     Indication: COLITIS ULCERATIVE
  13. BIOTIN [Concomitant]
     Indication: SUPPLEMENTATION THERAPY
  14. GAS-X [Concomitant]
     Indication: FLATULENCE
     Dosage: PRN

REACTIONS (3)
  - Madarosis [Not Recovered/Not Resolved]
  - Sinus congestion [Not Recovered/Not Resolved]
  - Oropharyngeal pain [Not Recovered/Not Resolved]
